FAERS Safety Report 4434047-6 (Version None)
Quarter: 2004Q3

REPORT INFORMATION
  Report Type: 
  Country: None (occurrence: None)
  Receive Date: 20040825
  Receipt Date: 20040813
  Transmission Date: 20050211
  Serious: Yes (Hospitalization)
  Sender: FDA-Public Use
  Company Number: 208455

PATIENT
  Age: 15 Year
  Sex: Male
  Weight: 35.9 kg

DRUGS (3)
  1. NUTROPIN AQ [Suspect]
     Indication: GROWTH HORMONE DEFICIENCY
     Dosage: 2.5 MG, QD, SUBCUTANEOUS
     Route: 058
     Dates: start: 20030101
  2. NUTROPIN DEPOT [Suspect]
     Indication: GROWTH HORMONE DEFICIENCY
     Dates: start: 20010101, end: 20030301
  3. SEROQUEL [Concomitant]

REACTIONS (8)
  - BLOOD BICARBONATE DECREASED [None]
  - BLOOD CHLORIDE DECREASED [None]
  - BLOOD SODIUM DECREASED [None]
  - DIABETES MELLITUS INSULIN-DEPENDENT [None]
  - KETOACIDOSIS [None]
  - PCO2 DECREASED [None]
  - PO2 DECREASED [None]
  - WEIGHT DECREASED [None]
